FAERS Safety Report 22697116 (Version 2)
Quarter: 2023Q4

REPORT INFORMATION
  Report Type: Spontaneous
  Country: FR (occurrence: FR)
  Receive Date: 20230712
  Receipt Date: 20231115
  Transmission Date: 20240109
  Serious: Yes (Other)
  Sender: FDA-Public Use
  Company Number: FR-AMERICAN REGENT INC-2023001645

PATIENT
  Age: 79 Year
  Sex: Male
  Weight: 59.7 kg

DRUGS (4)
  1. VENOFER [Suspect]
     Active Substance: IRON SUCROSE
     Indication: Mineral supplementation
     Dosage: 1 DOSAGE FORM, 1 IN 1 TOTAL
     Route: 042
     Dates: start: 20230613, end: 20230613
  2. TRANEXAMIC ACID [Suspect]
     Active Substance: TRANEXAMIC ACID
     Indication: Haemoptysis
     Dosage: 3 G, QD (1 G, TID). CUMULATIVE DOSE TO FIRST REACTION (NUMBER): 12 GRAM (1 GM, 3 IN 1 D)
     Route: 042
     Dates: start: 20230610, end: 20230615
  3. VORICONAZOLE [Suspect]
     Active Substance: VORICONAZOLE
     Indication: Lung disorder
     Dosage: 760 MG, QD (380 MG, BID) (380 MG,1 IN 12 HR)
     Route: 042
     Dates: start: 20230613, end: 20230615
  4. BACTRIM [Suspect]
     Active Substance: SULFAMETHOXAZOLE\TRIMETHOPRIM
     Indication: Lung disorder
     Dosage: 2400 MG, QD (800 MG, TID). CUMULATIVE DOSE TO FIRST REACTION (NUMBER) 12000 MILLIGRAM (800 MG,1 IN 8
     Route: 042
     Dates: start: 20230609, end: 20230613

REACTIONS (1)
  - Hallucination, visual [Recovered/Resolved]

NARRATIVE: CASE EVENT DATE: 20230613
